FAERS Safety Report 13547656 (Version 3)
Quarter: 2017Q3

REPORT INFORMATION
  Report Type: Report from Study
  Country: US (occurrence: US)
  Receive Date: 20170515
  Receipt Date: 20170921
  Transmission Date: 20171127
  Serious: Yes (Hospitalization, Other)
  Sender: FDA-Public Use
  Company Number: PHEH2017US013879

PATIENT
  Age: 31 Year
  Sex: Male

DRUGS (1)
  1. AFINITOR DISPERZ [Suspect]
     Active Substance: EVEROLIMUS
     Indication: ANGIOMYOLIPOMA
     Dosage: 10 MG, QD
     Route: 051
     Dates: start: 20150731

REACTIONS (3)
  - Clostridium difficile infection [Recovering/Resolving]
  - Incorrect route of drug administration [Unknown]
  - Seizure [Unknown]
